FAERS Safety Report 5493850-4 (Version None)
Quarter: 2007Q4

REPORT INFORMATION
  Report Type: 
  Country: None (occurrence: None)
  Receive Date: 20071019
  Receipt Date: 20071005
  Transmission Date: 20080405
  Serious: Yes (Other)
  Sender: FDA-Public Use
  Company Number: SPV1-2007-04428

PATIENT
  Sex: Female

DRUGS (1)
  1. VYVANSE [Suspect]
     Dates: start: 20070101, end: 20070101

REACTIONS (1)
  - SUICIDE ATTEMPT [None]
